FAERS Safety Report 11909961 (Version 1)
Quarter: 2016Q1

REPORT INFORMATION
  Report Type: Report from Study
  Country: US (occurrence: US)
  Receive Date: 20160112
  Receipt Date: 20160112
  Transmission Date: 20160526
  Serious: Yes (Other)
  Sender: FDA-Public Use
  Company Number: PHEH2015US003942

PATIENT
  Age: 11 Year
  Sex: Female

DRUGS (1)
  1. AFINITOR [Suspect]
     Active Substance: EVEROLIMUS
     Indication: PRODUCT USED FOR UNKNOWN INDICATION
     Dosage: 7.5 MG, QD
     Route: 048
     Dates: start: 20100101

REACTIONS (4)
  - Influenza [Unknown]
  - Respiratory tract congestion [Unknown]
  - Impaired healing [Unknown]
  - Accident [Unknown]

NARRATIVE: CASE EVENT DATE: 20150225
